FAERS Safety Report 23311403 (Version 1)
Quarter: 2023Q4

REPORT INFORMATION
  Report Type: Spontaneous
  Country: US (occurrence: US)
  Receive Date: 20231219
  Receipt Date: 20231219
  Transmission Date: 20240109
  Serious: Yes (Other)
  Sender: FDA-Public Use
  Company Number: US-KVK-TECH, INC-20231200157

PATIENT

DRUGS (3)
  1. DESMOPRESSIN ACETATE [Suspect]
     Active Substance: DESMOPRESSIN ACETATE
     Indication: Diabetes insipidus
     Dosage: UNK
     Route: 045
  2. DESMOPRESSIN ACETATE [Suspect]
     Active Substance: DESMOPRESSIN ACETATE
     Dosage: UNK
     Route: 048
  3. DESMOPRESSIN ACETATE [Suspect]
     Active Substance: DESMOPRESSIN ACETATE
     Dosage: UNK
     Route: 045

REACTIONS (2)
  - Nasal septum perforation [Recovered/Resolved]
  - Drug ineffective [Unknown]
